FAERS Safety Report 23069325 (Version 1)
Quarter: 2023Q4

REPORT INFORMATION
  Report Type: Spontaneous
  Country: GB (occurrence: GB)
  Receive Date: 20231016
  Receipt Date: 20231016
  Transmission Date: 20240109
  Serious: Yes (Other)
  Sender: FDA-Public Use
  Company Number: GB-MHRA-MED-202310031611212630-SLWYT

PATIENT
  Age: 33 Year
  Sex: Female
  Weight: 101 kg

DRUGS (1)
  1. METHYLPREDNISOLONE [Suspect]
     Active Substance: METHYLPREDNISOLONE
     Indication: Limb injury
     Dates: start: 20230823

REACTIONS (2)
  - Suicidal ideation [Recovered/Resolved]
  - Psychotic disorder [Unknown]

NARRATIVE: CASE EVENT DATE: 20230825
